FAERS Safety Report 24566275 (Version 1)
Quarter: 2024Q4

REPORT INFORMATION
  Report Type: Report from Study
  Country: TR (occurrence: TR)
  Receive Date: 20241030
  Receipt Date: 20241030
  Transmission Date: 20250114
  Serious: Yes (Hospitalization, Other)
  Sender: GUERBET
  Company Number: TR-GUERBET TIBBI VE KIMYEVI MADDELER-TR-20240006

PATIENT

DRUGS (3)
  1. LIPIODOL [Suspect]
     Active Substance: ETHIODIZED OIL
     Indication: Transcatheter arterial chemoembolisation
     Dosage: 15 MG OF BLEOCIN S (BLEOMYCIN SULFATE) DISSOLVED IN 5 ML OF SALINE, THEN MIXED WITH 10 ML OF LIPIODO
     Route: 013
  2. BLEOMYCIN SULFATE [Suspect]
     Active Substance: BLEOMYCIN SULFATE
     Indication: Transcatheter arterial chemoembolisation
     Dosage: 15 MG OF BLEOCIN S (BLEOMYCIN SULFATE) DISSOLVED IN 5 ML OF SALINE, THEN MIXED WITH 10 ML OF LIPIODO
     Route: 013
  3. SALINE [Concomitant]
     Active Substance: SODIUM CHLORIDE
     Indication: Transcatheter arterial chemoembolisation
     Dosage: 15 MG OF BLEOCIN S (BLEOMYCIN SULFATE) DISSOLVED IN 5 ML OF SALINE, THEN MIXED WITH 10 ML OF LIPIODO
     Route: 013

REACTIONS (2)
  - Post embolisation syndrome [Unknown]
  - Product use in unapproved indication [Unknown]
